FAERS Safety Report 7420772-1 (Version None)
Quarter: 2011Q2

REPORT INFORMATION
  Report Type: 
  Country: None (occurrence: None)
  Receive Date: 20110418
  Receipt Date: 20110404
  Transmission Date: 20111010
  Serious: Yes (Hospitalization, Other)
  Sender: FDA-Public Use
  Company Number: DE-ROCHE-764006

PATIENT
  Sex: Female
  Weight: 55.7 kg

DRUGS (3)
  1. IBANDRONATE [Concomitant]
     Dates: start: 20070101
  2. HERCEPTIN [Suspect]
     Route: 065
     Dates: start: 20070101, end: 20070501
  3. LETROZOLE [Concomitant]
     Route: 048
     Dates: start: 20070101

REACTIONS (5)
  - BLOOD CREATININE INCREASED [None]
  - SYNCOPE [None]
  - CARDIOMYOPATHY [None]
  - RENAL FAILURE [None]
  - PROTEINURIA [None]
